FAERS Safety Report 13089715 (Version 1)
Quarter: 2017Q1

REPORT INFORMATION
  Report Type: Spontaneous
  Country: JP (occurrence: JP)
  Receive Date: 20170105
  Receipt Date: 20170105
  Transmission Date: 20170428
  Serious: Yes (Other)
  Sender: FDA-Public Use
  Company Number: JP-SA-2016SA237687

PATIENT
  Sex: Female

DRUGS (4)
  1. ELPLAT [Suspect]
     Active Substance: OXALIPLATIN
     Indication: COLON CANCER
     Route: 041
  2. LEVOFOLINATE [Suspect]
     Active Substance: LEVOLEUCOVORIN CALCIUM
     Indication: COLON CANCER
     Route: 041
  3. 5-FU [Concomitant]
     Active Substance: FLUOROURACIL
     Route: 042
  4. 5-FU [Concomitant]
     Active Substance: FLUOROURACIL
     Route: 040

REACTIONS (4)
  - Vomiting [Recovered/Resolved]
  - Nausea [Recovering/Resolving]
  - Hyperammonaemia [Unknown]
  - Dehydration [Unknown]
